FAERS Safety Report 5313399-9 (Version None)
Quarter: 2007Q2

REPORT INFORMATION
  Report Type: 
  Country: None (occurrence: None)
  Receive Date: 20070427
  Receipt Date: 20070427
  Transmission Date: 20071010
  Serious: Yes (Death, Hospitalization)
  Sender: FDA-Public Use
  Company Number: None

PATIENT
  Sex: Male
  Weight: 75.8 kg

DRUGS (5)
  1. TEMOZOLOMIDE [Suspect]
     Dosage: 3500 MG
     Dates: start: 20061113, end: 20061204
  2. TEMOZOLOMIDE [Suspect]
     Dosage: 3500 MG
     Dates: start: 20061211, end: 20061214
  3. DEXAMETHASONE 0.5MG TAB [Concomitant]
  4. INSULIN [Concomitant]
  5. NORMITEN [Concomitant]

REACTIONS (7)
  - CONFUSIONAL STATE [None]
  - DEPRESSED LEVEL OF CONSCIOUSNESS [None]
  - LETHARGY [None]
  - MENINGITIS VIRAL [None]
  - PYREXIA [None]
  - VIRAL INFECTION [None]
  - VITREOUS DETACHMENT [None]
